FAERS Safety Report 11444913 (Version 1)
Quarter: 2015Q3

REPORT INFORMATION
  Report Type: Spontaneous
  Country: US (occurrence: None)
  Receive Date: 20150831
  Receipt Date: 20150831
  Transmission Date: 20151125
  Serious: Yes (Life-Threatening, Hospitalization, Other)
  Sender: FDA-Public Use
  Company Number: None

PATIENT
  Age: 30 Year
  Sex: Female
  Weight: 63.5 kg

DRUGS (5)
  1. STRATTERA [Concomitant]
     Active Substance: ATOMOXETINE HYDROCHLORIDE
  2. CLONOPIN [Concomitant]
     Active Substance: CLONAZEPAM
  3. NEXPLANON [Suspect]
     Active Substance: ETONOGESTREL
     Indication: ENDOMETRIOSIS
     Dosage: GIVEN  INTO/UNDER THE SKIN
     Dates: start: 20120813, end: 20150827
  4. IMPLANON [Concomitant]
     Active Substance: ETONOGESTREL
  5. NEXPLANON [Suspect]
     Active Substance: ETONOGESTREL
     Indication: OVARIAN CYST
     Dosage: GIVEN  INTO/UNDER THE SKIN
     Dates: start: 20120813, end: 20150827

REACTIONS (2)
  - Suicide attempt [None]
  - Skin reaction [None]

NARRATIVE: CASE EVENT DATE: 20150810
